FAERS Safety Report 9938977 (Version 1)
Quarter: 2014Q1

REPORT INFORMATION
  Report Type: Report from Study
  Country: US (occurrence: US)
  Receive Date: 20140303
  Receipt Date: 20140303
  Transmission Date: 20141002
  Serious: No
  Sender: FDA-Public Use
  Company Number: US-ABBVIE-13P-163-1034690-00

PATIENT
  Age: 54 Year
  Sex: Male

DRUGS (6)
  1. HUMIRA [Suspect]
     Indication: COLITIS ULCERATIVE
     Dosage: 160 MG LOADING DOSE
     Dates: start: 20121113, end: 20121113
  2. HUMIRA [Suspect]
     Dosage: 80 MG LOADING DOSE
     Dates: start: 20121127, end: 20121127
  3. HUMIRA [Suspect]
     Dates: start: 20121129
  4. LIALDA [Concomitant]
     Indication: PRODUCT USED FOR UNKNOWN INDICATION
     Dates: end: 20130108
  5. IMODIUM [Concomitant]
     Indication: DIARRHOEA
  6. BENTYL [Concomitant]
     Indication: ABDOMINAL PAIN

REACTIONS (3)
  - Drug ineffective [Not Recovered/Not Resolved]
  - Abdominal pain [Not Recovered/Not Resolved]
  - Diarrhoea [Not Recovered/Not Resolved]
